FAERS Safety Report 4630629-7 (Version None)
Quarter: 2005Q2

REPORT INFORMATION
  Report Type: 
  Country: None (occurrence: None)
  Receive Date: 20050408
  Receipt Date: 20050404
  Transmission Date: 20051028
  Serious: Yes (Death, Other)
  Sender: FDA-Public Use
  Company Number: FR-BRISTOL-MYERS SQUIBB COMPANY-12919395

PATIENT
  Age: 75 Year
  Sex: Female

DRUGS (1)
  1. CYCLOPHOSPHAMIDE [Suspect]
     Indication: MALIGNANT HISTIOCYTOSIS
     Dosage: 50 MG/DAY APR-00 TO MAR-01 (11 MTHS) DOSE UNSPECIFIED JUN-01 TO FEB-02 (8 MTHS)
     Dates: start: 20000401, end: 20020201

REACTIONS (2)
  - HEPATIC FAILURE [None]
  - HEPATITIS B [None]
